FAERS Safety Report 10677121 (Version 2)
Quarter: 2015Q1

REPORT INFORMATION
  Report Type: Spontaneous
  Country: US (occurrence: US)
  Receive Date: 20141226
  Receipt Date: 20150109
  Transmission Date: 20150720
  Serious: Yes (Death, Other)
  Sender: FDA-Public Use
  Company Number: US-MERCK-1412USA010449

PATIENT
  Sex: Female

DRUGS (1)
  1. NOXAFIL [Suspect]
     Active Substance: POSACONAZOLE
     Indication: PULMONARY MYCOSIS
     Dosage: 100 MG, BID
     Route: 048
     Dates: start: 20140825

REACTIONS (3)
  - Surgery [Fatal]
  - Hip fracture [Fatal]
  - Post procedural complication [Fatal]

NARRATIVE: CASE EVENT DATE: 2014
